FAERS Safety Report 9312310 (Version 1)
Quarter: 2013Q1

REPORT INFORMATION
  Report Type: Spontaneous
  Country: US (occurrence: None)
  Receive Date: 20130208
  Receipt Date: 20130208
  Transmission Date: 20140127
  Serious: Yes (Hospitalization)
  Sender: FDA-Public Use
  Company Number: 143923-1

PATIENT
  Age: 67 Year
  Sex: Female
  Weight: 73 kg

DRUGS (1)
  1. LEUCOVORIN CALCIUM FOR INJ. 50MG - BEDFORD LABS, INC. [Suspect]
     Indication: COLON CANCER
     Dates: start: 20121127

REACTIONS (6)
  - Diarrhoea [None]
  - Dehydration [None]
  - Metastases to lung [None]
  - Metastases to liver [None]
  - White blood cell count increased [None]
  - Platelet count decreased [None]
